FAERS Safety Report 6976422-1 (Version None)
Quarter: 2010Q3

REPORT INFORMATION
  Report Type: 
  Country: None (occurrence: None)
  Receive Date: 20100910
  Receipt Date: 20100901
  Transmission Date: 20110219
  Serious: Yes (Other)
  Sender: FDA-Public Use
  Company Number: JP-PFIZER INC-2010084944

PATIENT
  Age: 74 Year
  Sex: Male

DRUGS (2)
  1. ZYVOX [Suspect]
     Dosage: 1200 MG/DAY
     Route: 041
     Dates: start: 20100628
  2. MEROPEN [Suspect]

REACTIONS (2)
  - ANURIA [None]
  - RENAL IMPAIRMENT [None]
